FAERS Safety Report 9342357 (Version 1)
Quarter: 2013Q2

REPORT INFORMATION
  Report Type: Spontaneous
  Country: FR (occurrence: None)
  Receive Date: 20130607
  Receipt Date: 20130607
  Transmission Date: 20140414
  Serious: Yes (Hospitalization, Other)
  Sender: FDA-Public Use
  Company Number: ADR-2013-00953

PATIENT
  Age: 38 Year
  Sex: Male

DRUGS (3)
  1. BACLOFEN [Suspect]
     Dates: end: 20121101
  2. BACLOFEN [Suspect]
  3. RITROVIL (CLONAZEPAM): 4 MG/DAY [Concomitant]

REACTIONS (6)
  - Device related infection [None]
  - Dystonia [None]
  - Opisthotonus [None]
  - Choreoathetosis [None]
  - Hyperthermia [None]
  - Hyperhidrosis [None]
